FAERS Safety Report 5473844-5 (Version None)
Quarter: 2007Q3

REPORT INFORMATION
  Report Type: 
  Country: None (occurrence: None)
  Receive Date: 20070831
  Receipt Date: 20070402
  Transmission Date: 20080115
  Serious: No
  Sender: FDA-Public Use
  Company Number: 239260

PATIENT
  Age: 79 Year
  Sex: Male

DRUGS (3)
  1. LUCENTIS [Suspect]
     Indication: DRUG USE FOR UNKNOWN INDICATION
     Dates: start: 20060821
  2. DAILY VITAMIN (VITAMINS NOS) [Concomitant]
  3. PRESERVISION NOS (VITAMINS AND MINERALS) [Concomitant]

REACTIONS (1)
  - DRUG INEFFECTIVE [None]
